FAERS Safety Report 17466325 (Version 1)
Quarter: 2020Q1

REPORT INFORMATION
  Report Type: Report from Study
  Country: US (occurrence: US)
  Receive Date: 20200227
  Receipt Date: 20200227
  Transmission Date: 20200409
  Serious: No
  Sender: FDA-Public Use
  Company Number: NVSC2020US053108

PATIENT
  Age: 24 Year
  Sex: Female

DRUGS (1)
  1. FOCALIN XR [Suspect]
     Active Substance: DEXMETHYLPHENIDATE HYDROCHLORIDE
     Indication: PRODUCT USED FOR UNKNOWN INDICATION
     Dosage: 1X40 MG
     Route: 065

REACTIONS (4)
  - Energy increased [Unknown]
  - Nasopharyngitis [Unknown]
  - Feeling jittery [Unknown]
  - Dry mouth [Unknown]

NARRATIVE: CASE EVENT DATE: 20200128
